FAERS Safety Report 25064417 (Version 1)
Quarter: 2025Q1

REPORT INFORMATION
  Report Type: Spontaneous
  Country: TW (occurrence: TW)
  Receive Date: 20250311
  Receipt Date: 20250311
  Transmission Date: 20250409
  Serious: Yes (Life-Threatening, Other)
  Sender: BAYER HEALTHCARE PHARMACEUTICALS INC.
  Company Number: TW-BAYER-2025A032795

PATIENT
  Age: 55 Year
  Sex: Female
  Weight: 64.2 kg

DRUGS (2)
  1. ULTRAVIST [Suspect]
     Active Substance: IOPROMIDE
     Indication: Computerised tomogram abdomen
     Route: 042
     Dates: start: 20250303, end: 20250303
  2. ULTRAVIST [Suspect]
     Active Substance: IOPROMIDE
     Indication: Abdominal pain upper

REACTIONS (19)
  - Anaphylactic shock [Recovered/Resolved]
  - Contrast media allergy [Recovered/Resolved]
  - Seizure [Recovered/Resolved]
  - Loss of consciousness [Recovered/Resolved]
  - Blood pressure decreased [Recovered/Resolved]
  - Heart rate decreased [Recovered/Resolved]
  - Altered state of consciousness [Recovered/Resolved]
  - Laryngeal oedema [Recovered/Resolved]
  - Gastric haemorrhage [None]
  - Cold sweat [Recovered/Resolved]
  - Haemoptysis [Recovered/Resolved]
  - Increased viscosity of bronchial secretion [Recovered/Resolved]
  - Body temperature increased [Recovered/Resolved]
  - Respiratory rate increased [Recovered/Resolved]
  - Oropharyngeal pain [Recovered/Resolved]
  - Productive cough [Recovered/Resolved]
  - Blood potassium decreased [None]
  - Alanine aminotransferase decreased [None]
  - Aspartate aminotransferase decreased [None]

NARRATIVE: CASE EVENT DATE: 20250303
